FAERS Safety Report 6730045-8 (Version None)
Quarter: 2010Q2

REPORT INFORMATION
  Report Type: 
  Country: None (occurrence: None)
  Receive Date: 20100518
  Receipt Date: 20100513
  Transmission Date: 20101027
  Serious: Yes (Life-Threatening)
  Sender: FDA-Public Use
  Company Number: GB-BRISTOL-MYERS SQUIBB COMPANY-15105356

PATIENT
  Age: 48 Year
  Sex: Male
  Weight: 92 kg

DRUGS (5)
  1. ARIPIPRAZOLE [Suspect]
     Indication: DEPRESSION
     Route: 048
     Dates: start: 20090401
  2. ARIPIPRAZOLE [Suspect]
     Indication: PSYCHOTIC DISORDER
     Route: 048
     Dates: start: 20090401
  3. CITALOPRAM [Concomitant]
     Dates: start: 20010101
  4. CO-DYDRAMOL [Concomitant]
     Route: 048
     Dates: start: 20010101
  5. MIRTAZAPINE [Concomitant]
     Dates: start: 20080101

REACTIONS (1)
  - COLITIS ISCHAEMIC [None]
